FAERS Safety Report 6445166-7 (Version None)
Quarter: 2009Q4

REPORT INFORMATION
  Report Type: 
  Country: None (occurrence: None)
  Receive Date: 20091118
  Receipt Date: 20091112
  Transmission Date: 20100525
  Serious: Yes (Hospitalization)
  Sender: FDA-Public Use
  Company Number: FR-WYE-G04866709

PATIENT
  Sex: Male

DRUGS (4)
  1. EFFEXOR [Suspect]
     Dosage: 75 MG STRENGTH; DOSE UNKNOWN
     Route: 048
     Dates: end: 20090601
  2. DIHYDROERGOTAMINE MESYLATE [Concomitant]
     Route: 048
     Dates: end: 20090101
  3. RISPERDAL [Concomitant]
     Route: 048
  4. DEPAKENE [Concomitant]
     Route: 048

REACTIONS (3)
  - CHEST PAIN [None]
  - EOSINOPHILIC PNEUMONIA ACUTE [None]
  - PULMONARY INFARCTION [None]
